FAERS Safety Report 8583167-3 (Version None)
Quarter: 2012Q3

REPORT INFORMATION
  Report Type: 
  Country: None (occurrence: None)
  Receive Date: 20120809
  Receipt Date: 20110405
  Transmission Date: 20120928
  Serious: Yes (Death)
  Sender: FDA-Public Use
  Company Number: PHHY2011FR117069

PATIENT
  Age: 14 Year
  Sex: Female

DRUGS (4)
  1. TERBINAFINE HCL [Suspect]
     Indication: ANTIFUNGAL TREATMENT
     Dosage: 250 MG, BID
  2. CASPOFUNGIN ACETATE [Concomitant]
     Indication: INTERVERTEBRAL DISCITIS
  3. FLUCYTOSINE [Suspect]
     Dosage: 6 G PER DAY
  4. AMPHOTERICIN B [Concomitant]
     Indication: INTERVERTEBRAL DISCITIS

REACTIONS (1)
  - DEATH [None]
